FAERS Safety Report 5656265-1 (Version None)
Quarter: 2008Q1

REPORT INFORMATION
  Report Type: 
  Country: None (occurrence: None)
  Receive Date: 20080305
  Receipt Date: 20080215
  Transmission Date: 20080703
  Serious: Yes (Death)
  Sender: FDA-Public Use
  Company Number: 20084788

PATIENT
  Age: 88 Year
  Sex: Male

DRUGS (7)
  1. BACLOFEN [Suspect]
     Indication: MUSCLE SPASTICITY
     Dosage: 50 MCG, DAILY, INTRATHECAL
     Route: 037
     Dates: start: 20060515, end: 20060629
  2. LIORESAL [Concomitant]
  3. ULCERLMIN [Concomitant]
  4. FAMOTIDINE [Concomitant]
  5. BISOLVAN [Concomitant]
  6. AMLODIN [Concomitant]
  7. DIOVAN [Concomitant]

REACTIONS (14)
  - CATHETER RELATED INFECTION [None]
  - DRUG WITHDRAWAL SYNDROME [None]
  - GENERAL PHYSICAL HEALTH DETERIORATION [None]
  - HYPOTENSION [None]
  - IMPLANT SITE ABSCESS [None]
  - IMPLANT SITE INFECTION [None]
  - MENTAL DISORDER [None]
  - MUSCLE SPASMS [None]
  - RENAL FAILURE [None]
  - RESPIRATORY FAILURE [None]
  - SEPSIS [None]
  - STAPHYLOCOCCAL INFECTION [None]
  - SUBCUTANEOUS ABSCESS [None]
  - TACHYCARDIA [None]
